FAERS Safety Report 4955775-X (Version None)
Quarter: 2006Q1

REPORT INFORMATION
  Report Type: 
  Country: None (occurrence: None)
  Receive Date: 20060323
  Receipt Date: 20060315
  Transmission Date: 20060701
  Serious: Yes (Other)
  Sender: FDA-Public Use
  Company Number: HQWYE354916MAR06

PATIENT
  Age: 74 Year
  Sex: Male

DRUGS (1)
  1. ANCARON (AMIODARONE, TABLET) [Suspect]
     Dosage: 200 MG TO 400 MG DAILY ORAL
     Route: 048

REACTIONS (1)
  - KERATOPATHY [None]
